FAERS Safety Report 23664020 (Version 6)
Quarter: 2025Q3

REPORT INFORMATION
  Report Type: Report from Study
  Country: CO (occurrence: CO)
  Receive Date: 20240322
  Receipt Date: 20250919
  Transmission Date: 20251021
  Serious: Yes (Other)
  Sender: TAKEDA
  Company Number: CO-TAKEDA-2024TUS026008

PATIENT
  Age: 10 Year
  Sex: Male
  Weight: 37 kg

DRUGS (4)
  1. ADVATE [Suspect]
     Active Substance: ANTIHEMOPHILIC FACTOR, HUMAN RECOMBINANT
     Indication: Factor VIII deficiency
     Dosage: 500 INTERNATIONAL UNIT, Q12H
     Dates: start: 20231211
  2. ADVATE [Suspect]
     Active Substance: ANTIHEMOPHILIC FACTOR, HUMAN RECOMBINANT
  3. ADVATE [Suspect]
     Active Substance: ANTIHEMOPHILIC FACTOR, HUMAN RECOMBINANT
  4. HAEMATE P [Concomitant]
     Active Substance: ANTIHEMOPHILIC FACTOR HUMAN
     Indication: Prophylaxis

REACTIONS (9)
  - Ecchymosis [Recovering/Resolving]
  - Tooth socket haemorrhage [Recovered/Resolved]
  - Groin pain [Recovering/Resolving]
  - Feeling hot [Recovering/Resolving]
  - Hypokinesia [Unknown]
  - Tendonitis [Recovered/Resolved]
  - Arthralgia [Recovered/Resolved]
  - Oedema peripheral [Recovering/Resolving]
  - Tooth loss [Recovered/Resolved]

NARRATIVE: CASE EVENT DATE: 20240209
